FAERS Safety Report 25886293 (Version 1)
Quarter: 2025Q4

REPORT INFORMATION
  Report Type: Spontaneous
  Country: KE (occurrence: KE)
  Receive Date: 20251006
  Receipt Date: 20251006
  Transmission Date: 20260118
  Serious: Yes (Hospitalization)
  Sender: ABBVIE
  Company Number: KE-ABBVIE-6486135

PATIENT
  Age: 1 Day
  Sex: Male

DRUGS (4)
  1. SURVANTA [Suspect]
     Active Substance: BERACTANT
     Indication: Respiratory disorder
     Route: 039
     Dates: start: 20250927
  2. PENICILLIN G [Concomitant]
     Active Substance: PENICILLIN G
     Indication: Product used for unknown indication
     Dosage: 50,000- 10000(30MG/ KG BY IV INJECTION)
     Route: 042
     Dates: start: 20250927
  3. GENTAMICIN [Concomitant]
     Active Substance: GENTAMICIN
     Indication: Product used for unknown indication
     Route: 042
     Dates: start: 20250927
  4. CAFFEINE CITRATE [Concomitant]
     Active Substance: CAFFEINE CITRATE
     Indication: Infantile apnoea
     Dosage: 20MG/KG IV LOADING.10MG /KG MAINTENANCE
     Route: 042
     Dates: start: 20250927

REACTIONS (4)
  - Respiratory disorder neonatal [Recovering/Resolving]
  - Hypoventilation [Recovering/Resolving]
  - Neonatal hypoxia [Recovering/Resolving]
  - Endotracheal intubation complication [Recovering/Resolving]

NARRATIVE: CASE EVENT DATE: 20250928
